FAERS Safety Report 9632360 (Version 1)
Quarter: 2013Q4

REPORT INFORMATION
  Report Type: Spontaneous
  Country: BR (occurrence: None)
  Receive Date: 20131016
  Receipt Date: 20131016
  Transmission Date: 20140711
  Serious: Yes (Hospitalization, Other)
  Sender: FDA-Public Use
  Company Number: DSU-2013-04756

PATIENT
  Age: 51 Year
  Sex: Male
  Weight: 105 kg

DRUGS (1)
  1. OLMETEC HCT [Suspect]
     Indication: PRODUCT USED FOR UNKNOWN INDICATION
     Dosage: 20/ 12.5 MG (QD), PER ORAL
     Route: 048
     Dates: start: 201307, end: 20130930

REACTIONS (5)
  - Diabetes mellitus [None]
  - Accident [None]
  - Rib fracture [None]
  - Drug dose omission [None]
  - Fall [None]
